FAERS Safety Report 6722332-4 (Version None)
Quarter: 2010Q2

REPORT INFORMATION
  Report Type: 
  Country: None (occurrence: None)
  Receive Date: 20100512
  Receipt Date: 20100505
  Transmission Date: 20101027
  Serious: Yes (Other)
  Sender: FDA-Public Use
  Company Number: GXKR2010IT05054

PATIENT
  Age: 33 Year
  Sex: Male

DRUGS (1)
  1. METHYLPREDNISOLONE 4MG TAB [Suspect]
     Indication: ENCEPHALOPATHY
     Dosage: 2.5 G (TOTAL DOSE)
     Route: 042

REACTIONS (3)
  - BIOPSY LIVER ABNORMAL [None]
  - HEPATIC NECROSIS [None]
  - HEPATITIS ACUTE [None]
